FAERS Safety Report 5426015-2 (Version None)
Quarter: 2007Q3

REPORT INFORMATION
  Report Type: 
  Country: None (occurrence: None)
  Receive Date: 20070827
  Receipt Date: 20070815
  Transmission Date: 20080115
  Serious: Yes (Hospitalization)
  Sender: FDA-Public Use
  Company Number: US-AMGEN-US153246

PATIENT
  Sex: Male

DRUGS (3)
  1. PANITUMUMAB [Suspect]
     Indication: COLORECTAL CANCER
     Route: 042
     Dates: start: 20050517
  2. OXALIPLATIN [Concomitant]
     Route: 065
     Dates: start: 20050517
  3. AVASTIN [Concomitant]
     Route: 065

REACTIONS (1)
  - DEHYDRATION [None]
